FAERS Safety Report 7240654-8 (Version None)
Quarter: 2011Q1

REPORT INFORMATION
  Report Type: 
  Country: None (occurrence: None)
  Receive Date: 20110120
  Receipt Date: 20110120
  Transmission Date: 20110831
  Serious: Yes (Other)
  Sender: FDA-Public Use
  Company Number: None

PATIENT
  Sex: Female
  Weight: 103.8737 kg

DRUGS (4)
  1. FOSINOPRIL SODIUM [Suspect]
     Indication: HYPERTENSION
     Dosage: 10 MG 1 DAILY
     Dates: start: 20100101
  2. LISINOPRIL [Suspect]
     Dosage: 10 MG 1 DAILY
     Dates: start: 20100101
  3. ZETIA [Suspect]
     Dosage: 10 MG 1 DAILY
     Dates: start: 20100101
  4. RAMIPRIL [Suspect]
     Indication: HYPERTENSION
     Dosage: 10 MG 1 DAILY
     Dates: start: 20100101

REACTIONS (6)
  - HEADACHE [None]
  - LETHARGY [None]
  - ABDOMINAL PAIN UPPER [None]
  - CONSTIPATION [None]
  - SENSATION OF HEAVINESS [None]
  - EPISTAXIS [None]
